FAERS Safety Report 12902392 (Version 6)
Quarter: 2017Q2

REPORT INFORMATION
  Report Type: Spontaneous
  Country: US (occurrence: US)
  Receive Date: 20161102
  Receipt Date: 20170518
  Transmission Date: 20170830
  Serious: No
  Sender: FDA-Public Use
  Company Number: PHEH2016US028547

PATIENT
  Sex: Female
  Weight: 54.42 kg

DRUGS (1)
  1. ZOFRAN ODT [Suspect]
     Active Substance: ONDANSETRON HYDROCHLORIDE
     Indication: VOMITING IN PREGNANCY
     Dosage: 1 DF, BID
     Route: 048
     Dates: start: 20080701, end: 20090313

REACTIONS (6)
  - Emotional distress [Unknown]
  - Anxiety [Unknown]
  - Injury [Unknown]
  - Maternal exposure during pregnancy [Unknown]
  - Product use in unapproved indication [Unknown]
  - Pain [Unknown]
